FAERS Safety Report 11582649 (Version 1)
Quarter: 2015Q4

REPORT INFORMATION
  Report Type: Spontaneous
  Country: US (occurrence: US)
  Receive Date: 20151001
  Receipt Date: 20151001
  Transmission Date: 20160304
  Serious: Yes (Hospitalization)
  Sender: FDA-Public Use
  Company Number: US-ROCHE-678909

PATIENT
  Age: 70 Year
  Sex: Male
  Weight: 86.6 kg

DRUGS (2)
  1. RIBAVIRIN. [Suspect]
     Active Substance: RIBAVIRIN
     Indication: HEPATITIS C
     Dosage: DIVIDED DOSES
     Route: 048
     Dates: start: 20090713, end: 20091222
  2. PEGASYS [Suspect]
     Active Substance: PEGINTERFERON ALFA-2A
     Indication: HEPATITIS C
     Dosage: FORM: PRE FILLED SYRINGE
     Route: 058
     Dates: start: 20090713, end: 20091222

REACTIONS (8)
  - Depression [Unknown]
  - Crying [Unknown]
  - Rash generalised [Unknown]
  - Weight decreased [Unknown]
  - Dry skin [Not Recovered/Not Resolved]
  - Insomnia [Unknown]
  - Vision blurred [Unknown]
  - Pancreatitis [Unknown]

NARRATIVE: CASE EVENT DATE: 200907
